FAERS Safety Report 16962720 (Version 1)
Quarter: 2019Q4

REPORT INFORMATION
  Report Type: Spontaneous
  Country: US (occurrence: US)
  Receive Date: 20191025
  Receipt Date: 20191025
  Transmission Date: 20200122
  Serious: Yes (Other)
  Sender: FDA-Public Use
  Company Number: None

PATIENT
  Age: 51 Year
  Sex: Female
  Weight: 85.5 kg

DRUGS (1)
  1. TALTZ [Suspect]
     Active Substance: IXEKIZUMAB
     Indication: PSORIASIS
     Dosage: ?          QUANTITY:2 INJECTION(S);?
     Route: 058
     Dates: start: 20190920, end: 20190920

REACTIONS (5)
  - Feeling abnormal [None]
  - Insomnia [None]
  - Feeling of body temperature change [None]
  - Urticaria [None]
  - Pain [None]

NARRATIVE: CASE EVENT DATE: 20190929
